FAERS Safety Report 19973649 (Version 1)
Quarter: 2021Q4

REPORT INFORMATION
  Report Type: Spontaneous
  Country: US (occurrence: US)
  Receive Date: 20211020
  Receipt Date: 20211020
  Transmission Date: 20220303
  Serious: No
  Sender: FDA-Public Use
  Company Number: 2021A753910

PATIENT
  Sex: Female
  Weight: 83.9 kg

DRUGS (1)
  1. TAGRISSO [Suspect]
     Active Substance: OSIMERTINIB
     Indication: Non-small cell lung cancer
     Route: 048
     Dates: start: 202008

REACTIONS (8)
  - Decreased appetite [Unknown]
  - Fatigue [Unknown]
  - Spinal meningioma benign [Not Recovered/Not Resolved]
  - Arthralgia [Not Recovered/Not Resolved]
  - Diarrhoea [Unknown]
  - Urticaria [Unknown]
  - Stomatitis [Unknown]
  - Onychoclasis [Unknown]
